FAERS Safety Report 10878891 (Version 2)
Quarter: 2015Q1

REPORT INFORMATION
  Report Type: Spontaneous
  Country: HR (occurrence: HR)
  Receive Date: 20150302
  Receipt Date: 20150303
  Transmission Date: 20150721
  Serious: Yes (Other)
  Sender: FDA-Public Use
  Company Number: HR-PFIZER INC-2015073102

PATIENT
  Age: 52 Year
  Sex: Female
  Weight: 87 kg

DRUGS (2)
  1. DALACIN C [Suspect]
     Active Substance: CLINDAMYCIN PHOSPHATE
     Indication: PROCEDURAL SITE REACTION
     Dosage: 300 MG, 3X/DAY
     Route: 048
     Dates: start: 20150115, end: 20150121
  2. MEDAZOL [Suspect]
     Active Substance: METRONIDAZOLE
     Indication: PROCEDURAL SITE REACTION
     Dosage: 400 MG, 3X/DAY
     Route: 048
     Dates: start: 20150115, end: 20150121

REACTIONS (6)
  - Oedema [Recovered/Resolved]
  - Pyrexia [Recovered/Resolved]
  - Hallucination [Recovered/Resolved]
  - Tinnitus [Recovered/Resolved]
  - Headache [Recovered/Resolved]
  - Musculoskeletal stiffness [Recovered/Resolved]

NARRATIVE: CASE EVENT DATE: 20150115
